FAERS Safety Report 16757972 (Version 2)
Quarter: 2019Q4

REPORT INFORMATION
  Report Type: Report from Study
  Country: JP (occurrence: JP)
  Receive Date: 20190830
  Receipt Date: 20191004
  Transmission Date: 20200122
  Serious: Yes (Life-Threatening, Other)
  Sender: FDA-Public Use
  Company Number: JP-SA-2019SA004665

PATIENT
  Age: 63 Year
  Sex: Male
  Weight: 61.3 kg

DRUGS (5)
  1. FLUOROURACIL. [Suspect]
     Active Substance: FLUOROURACIL
     Indication: COLON CANCER
     Dosage: 200 MG/M2, 1X
     Route: 040
     Dates: start: 20181213, end: 20181213
  2. FLUOROURACIL. [Suspect]
     Active Substance: FLUOROURACIL
     Dosage: 1600 MG/M2, 1X
     Route: 041
     Dates: start: 20181213, end: 20181213
  3. IRINOTECAN [Suspect]
     Active Substance: IRINOTECAN
     Indication: COLON CANCER
     Dosage: 100 MG/M2, 1X
     Route: 065
     Dates: start: 20181213, end: 20181213
  4. CALCIUM FOLINATE [Suspect]
     Active Substance: LEUCOVORIN CALCIUM
     Indication: COLON CANCER
     Dosage: 200 MG/M2, 1X
     Route: 065
     Dates: start: 20181213, end: 20181213
  5. AFLIBERCEPT [Suspect]
     Active Substance: AFLIBERCEPT
     Indication: COLON CANCER
     Dosage: 4 MG/KG, 1X
     Route: 041
     Dates: start: 20181213, end: 20181213

REACTIONS (2)
  - Large intestine perforation [Unknown]
  - Abdominal abscess [Unknown]

NARRATIVE: CASE EVENT DATE: 20181227
